FAERS Safety Report 23772041 (Version 2)
Quarter: 2024Q2

REPORT INFORMATION
  Report Type: Report from Study
  Country: US (occurrence: US)
  Receive Date: 20240423
  Receipt Date: 20240503
  Transmission Date: 20240717
  Serious: Yes (Hospitalization, Other)
  Sender: FDA-Public Use
  Company Number: US-TAKEDA-US202007112

PATIENT
  Age: 74 Year
  Sex: Female

DRUGS (5)
  1. LANADELUMAB [Suspect]
     Active Substance: LANADELUMAB
     Indication: Hereditary angioedema
     Dosage: 1 DOSAGE FORM, Q2WEEKS
     Route: 058
     Dates: start: 20190211
  2. LANADELUMAB [Suspect]
     Active Substance: LANADELUMAB
     Indication: Prophylaxis
     Dosage: 300 MILLIGRAM
     Route: 058
     Dates: start: 20200217
  3. LANADELUMAB [Suspect]
     Active Substance: LANADELUMAB
     Dosage: 1 DOSAGE FORM, Q2WEEKS
     Route: 058
  4. LANADELUMAB [Suspect]
     Active Substance: LANADELUMAB
     Dosage: 300 MILLIGRAM, Q2WEEKS
     Route: 058
  5. LANADELUMAB [Suspect]
     Active Substance: LANADELUMAB
     Dosage: 300 MILLIGRAM, Q3WEEKS
     Route: 058

REACTIONS (8)
  - Blood pressure increased [Recovered/Resolved]
  - Cerebrovascular accident [Recovered/Resolved]
  - Hereditary angioedema [Recovered/Resolved]
  - Vasodilatation [Recovered/Resolved]
  - Insurance issue [Recovered/Resolved]
  - Inappropriate schedule of product administration [Recovered/Resolved]
  - Product dose omission issue [Recovered/Resolved]
  - Inability to afford medication [Recovered/Resolved]

NARRATIVE: CASE EVENT DATE: 20240201
